FAERS Safety Report 5222424-5 (Version None)
Quarter: 2007Q1

REPORT INFORMATION
  Report Type: 
  Country: None (occurrence: None)
  Receive Date: 20070124
  Receipt Date: 20070118
  Transmission Date: 20070707
  Serious: Yes (Hospitalization)
  Sender: FDA-Public Use
  Company Number: 163-20785-07010930

PATIENT
  Age: 65 Year
  Sex: Female

DRUGS (5)
  1. THALOMID [Suspect]
     Indication: MULTIPLE MYELOMA
     Dosage: 50 MG, 1 IN 1 D, ORAL; 100 MG, 1 IN 1 D, ORAL
     Route: 048
     Dates: start: 20060417, end: 20060915
  2. THALOMID [Suspect]
     Indication: MULTIPLE MYELOMA
     Dosage: 50 MG, 1 IN 1 D, ORAL; 100 MG, 1 IN 1 D, ORAL
     Route: 048
     Dates: start: 20070101
  3. METHYLPREDNISOLONE [Concomitant]
  4. PREDNISONE TAB [Concomitant]
  5. DECADRON [Concomitant]

REACTIONS (1)
  - HIP FRACTURE [None]
